FAERS Safety Report 13725397 (Version 1)
Quarter: 2017Q3

REPORT INFORMATION
  Report Type: Spontaneous
  Country: US (occurrence: US)
  Receive Date: 20170706
  Receipt Date: 20170706
  Transmission Date: 20171127
  Serious: No
  Sender: FDA-Public Use
  Company Number: None

PATIENT
  Age: 53 Year
  Sex: Male

DRUGS (1)
  1. ESCITALOPRAM [Suspect]
     Active Substance: ESCITALOPRAM OXALATE
     Dosage: ?          OTHER DOSE:MG;?
     Route: 048
     Dates: start: 20170614, end: 20170619

REACTIONS (1)
  - Visual impairment [None]

NARRATIVE: CASE EVENT DATE: 20160614
